FAERS Safety Report 20387282 (Version 1)
Quarter: 2022Q1

REPORT INFORMATION
  Report Type: Spontaneous
  Country: CA (occurrence: CA)
  Receive Date: 20220127
  Receipt Date: 20220127
  Transmission Date: 20220423
  Serious: Yes (Hospitalization, Other)
  Sender: FDA-Public Use
  Company Number: CA-AstraZeneca-2022A029035

PATIENT
  Age: 80 Year
  Sex: Male
  Weight: 89 kg

DRUGS (42)
  1. ALVESCO [Suspect]
     Active Substance: CICLESONIDE
     Indication: Product used for unknown indication
     Route: 055
  2. ACLIDINIUM BROMIDE\FORMOTEROL FUMARATE [Suspect]
     Active Substance: ACLIDINIUM BROMIDE\FORMOTEROL FUMARATE
     Indication: Product used for unknown indication
     Route: 055
  3. ACLIDINIUM BROMIDE\FORMOTEROL FUMARATE [Suspect]
     Active Substance: ACLIDINIUM BROMIDE\FORMOTEROL FUMARATE
     Route: 055
  4. FORMOTEROL FUMARATE [Suspect]
     Active Substance: FORMOTEROL FUMARATE
     Indication: Product used for unknown indication
     Route: 065
  5. FORMOTEROL FUMARATE [Suspect]
     Active Substance: FORMOTEROL FUMARATE
     Route: 065
  6. ROSUVASTATIN [Suspect]
     Active Substance: ROSUVASTATIN
     Indication: Product used for unknown indication
     Route: 065
  7. ROSUVASTATIN [Suspect]
     Active Substance: ROSUVASTATIN
     Route: 065
  8. SYMBICORT [Suspect]
     Active Substance: BUDESONIDE\FORMOTEROL FUMARATE DIHYDRATE
     Indication: Asthma
     Dosage: 1 EVERY 1 DAYS
     Route: 055
  9. SYMBICORT [Suspect]
     Active Substance: BUDESONIDE\FORMOTEROL FUMARATE DIHYDRATE
     Indication: Asthma
     Dosage: 1 EVERY 1 DAYS
     Route: 055
  10. RAMIPRIL [Suspect]
     Active Substance: RAMIPRIL
     Indication: Product used for unknown indication
     Route: 065
  11. RAMIPRIL [Suspect]
     Active Substance: RAMIPRIL
     Route: 065
  12. RAMIPRIL [Suspect]
     Active Substance: RAMIPRIL
     Route: 065
  13. INFLUENZA VIRUS VACCINE [Suspect]
     Active Substance: INFLUENZA VIRUS VACCINE
     Indication: Prophylaxis
     Route: 065
  14. ACETYLCYSTEINE [Suspect]
     Active Substance: ACETYLCYSTEINE
     Indication: Product used for unknown indication
     Route: 065
  15. ACETYLCYSTEINE [Suspect]
     Active Substance: ACETYLCYSTEINE
     Route: 065
  16. ALBUTEROL SULFATE [Suspect]
     Active Substance: ALBUTEROL SULFATE
     Indication: Asthma
  17. ALBUTEROL SULFATE [Suspect]
     Active Substance: ALBUTEROL SULFATE
     Indication: Asthma
  18. AMLODIPINE BESYLATE [Suspect]
     Active Substance: AMLODIPINE BESYLATE
     Indication: Product used for unknown indication
     Route: 065
  19. ASPIRIN [Suspect]
     Active Substance: ASPIRIN
     Indication: Product used for unknown indication
     Route: 065
  20. AZITHROMYCIN [Suspect]
     Active Substance: AZITHROMYCIN
     Indication: Product used for unknown indication
     Route: 065
  21. AZITHROMYCIN [Suspect]
     Active Substance: AZITHROMYCIN
     Route: 065
  22. DOXYCYCLINE [Suspect]
     Active Substance: DOXYCYCLINE
     Indication: Product used for unknown indication
     Route: 065
  23. FLOMAX [Suspect]
     Active Substance: TAMSULOSIN HYDROCHLORIDE
     Indication: Product used for unknown indication
     Route: 065
  24. FLOMAX [Suspect]
     Active Substance: TAMSULOSIN HYDROCHLORIDE
     Route: 065
  25. LEVOFLOXACIN HEMIHYDRATE [Suspect]
     Active Substance: LEVOFLOXACIN
     Indication: Product used for unknown indication
     Route: 065
  26. LEVOFLOXACIN HEMIHYDRATE [Suspect]
     Active Substance: LEVOFLOXACIN
     Route: 065
  27. LYRICA [Suspect]
     Active Substance: PREGABALIN
     Indication: Product used for unknown indication
     Route: 065
  28. LYRICA [Suspect]
     Active Substance: PREGABALIN
     Route: 065
  29. MELATONIN [Suspect]
     Active Substance: MELATONIN
     Indication: Product used for unknown indication
     Route: 065
  30. MELATONIN [Suspect]
     Active Substance: MELATONIN
     Route: 065
  31. NAPROXEN [Suspect]
     Active Substance: NAPROXEN
     Indication: Product used for unknown indication
     Route: 065
  32. NAPROXEN [Suspect]
     Active Substance: NAPROXEN
     Route: 065
  33. PANTOPRAZOLE [Suspect]
     Active Substance: PANTOPRAZOLE
     Indication: Product used for unknown indication
     Route: 065
  34. PANTOPRAZOLE [Suspect]
     Active Substance: PANTOPRAZOLE
     Route: 065
  35. PANTOPRAZOLE [Suspect]
     Active Substance: PANTOPRAZOLE
     Route: 065
  36. PNEUMOCOCCAL 13-VALENT CONJUGATE VACCINE [Suspect]
     Active Substance: PNEUMOCOCCAL 13-VALENT CONJUGATE VACCINE
     Indication: Prophylaxis
     Route: 065
  37. PNEUMOCOCCAL 13-VALENT CONJUGATE VACCINE [Suspect]
     Active Substance: PNEUMOCOCCAL 13-VALENT CONJUGATE VACCINE
     Indication: Prophylaxis
     Route: 065
  38. PREDNISONE [Suspect]
     Active Substance: PREDNISONE
     Indication: Product used for unknown indication
     Route: 065
  39. PREDNISONE [Suspect]
     Active Substance: PREDNISONE
     Route: 065
  40. PREGABALIN [Suspect]
     Active Substance: PREGABALIN
     Indication: Product used for unknown indication
     Route: 065
  41. PREGABALIN [Suspect]
     Active Substance: PREGABALIN
     Route: 065
  42. SPIRIVA [Suspect]
     Active Substance: TIOTROPIUM BROMIDE MONOHYDRATE
     Indication: Asthma
     Dosage: 1 EVERY 1 DAYS
     Route: 065

REACTIONS (22)
  - Transient ischaemic attack [Unknown]
  - Asthma [Unknown]
  - Benign prostatic hyperplasia [Unknown]
  - Breath sounds abnormal [Unknown]
  - Bronchiectasis [Unknown]
  - Chronic obstructive pulmonary disease [Unknown]
  - Congenital hiatus hernia [Unknown]
  - Coronary artery disease [Unknown]
  - Dyspnoea [Unknown]
  - Dyspnoea exertional [Unknown]
  - Full blood count abnormal [Unknown]
  - Gastrooesophageal reflux disease [Unknown]
  - Hypercholesterolaemia [Unknown]
  - Hypertension [Unknown]
  - Joint injury [Unknown]
  - Loss of personal independence in daily activities [Unknown]
  - Malignant melanoma in situ [Unknown]
  - Micturition urgency [Unknown]
  - Obstructive airways disorder [Unknown]
  - Productive cough [Unknown]
  - Therapeutic product effect incomplete [Unknown]
  - Wheezing [Unknown]
